FAERS Safety Report 18328299 (Version 2)
Quarter: 2021Q1

REPORT INFORMATION
  Report Type: Spontaneous
  Country: CO (occurrence: CO)
  Receive Date: 20200929
  Receipt Date: 20210326
  Transmission Date: 20210419
  Serious: Yes (Hospitalization)
  Sender: FDA-Public Use
  Company Number: CO-ROCHE-2686580

PATIENT
  Age: 21 Year
  Sex: Female
  Weight: 39 kg

DRUGS (1)
  1. PULMOZYME [Suspect]
     Active Substance: DORNASE ALFA
     Indication: CYSTIC FIBROSIS
     Dosage: (1 MG/ML) SOLUTION FOR INHALATION 2.5 MG/2.5 ML
     Route: 045

REACTIONS (7)
  - Lung disorder [Unknown]
  - Abdominal pain [Unknown]
  - Chest pain [Unknown]
  - Respiratory tract infection [Recovered/Resolved]
  - Infection [Unknown]
  - Productive cough [Unknown]
  - Respiratory distress [Unknown]

NARRATIVE: CASE EVENT DATE: 20200104
